FAERS Safety Report 17557684 (Version 1)
Quarter: 2020Q1

REPORT INFORMATION
  Report Type: Spontaneous
  Country: AU (occurrence: AU)
  Receive Date: 20200318
  Receipt Date: 20200318
  Transmission Date: 20200409
  Serious: Yes (Hospitalization, Other)
  Sender: FDA-Public Use
  Company Number: AU-ASTRAZENECA-2020SE38027

PATIENT
  Age: 51 Year
  Sex: Female
  Weight: 75 kg

DRUGS (16)
  1. CLOZAPINE. [Suspect]
     Active Substance: CLOZAPINE
     Dosage: 175MG NOW TITRATED TO 200MG NOCTE
     Route: 065
  2. ACAMPROSATE [Concomitant]
     Active Substance: ACAMPROSATE
     Dosage: 666MG,ORAL
  3. TARGIN [Suspect]
     Active Substance: NALOXONE HYDROCHLORIDE\OXYCODONE HYDROCHLORIDE
     Indication: PAIN
     Dosage: 10/20MG BD
     Route: 065
  4. MIRTAZAPINE. [Suspect]
     Active Substance: MIRTAZAPINE
     Dosage: 30MG 2000
     Route: 065
  5. IVABRADINE [Concomitant]
     Active Substance: IVABRADINE
     Dosage: 5MG , TWICE A DAY WITH FOOD
  6. MAGNESIUM ASPARTATE [Concomitant]
     Active Substance: MAGNESIUM ASPARTATE
     Dosage: 500MG EVERY NIGHT
  7. QUETIAPINE. [Suspect]
     Active Substance: QUETIAPINE
     Dosage: 50MG 1200; 1500
     Route: 048
  8. THIAMINE. [Concomitant]
     Active Substance: THIAMINE
     Dosage: 100 MG , 3 TIMES A DAY
  9. DESVENLAFAXINE. [Suspect]
     Active Substance: DESVENLAFAXINE
     Dosage: 100MG, 600,1500
     Route: 065
  10. PANTOPRAZOLE [Concomitant]
     Active Substance: PANTOPRAZOLE
     Dosage: 40MG EVERY MORNING
  11. MIRTAZAPINE. [Suspect]
     Active Substance: MIRTAZAPINE
     Dosage: 15MG 600, 1200, 1500
     Route: 065
  12. DIAZEPAM. [Suspect]
     Active Substance: DIAZEPAM
     Dosage: 5MG 2000
     Route: 065
  13. QUETIAPINE. [Suspect]
     Active Substance: QUETIAPINE
     Dosage: 100MG 0600
     Route: 048
  14. ZIPRASIDONE. [Suspect]
     Active Substance: ZIPRASIDONE
     Dosage: 80MG -DOSES: 600, 1200, 1500, 1800
     Route: 065
  15. ASPIRIN. [Concomitant]
     Active Substance: ASPIRIN
     Dosage: 100MG , EVERY MORNING WITH FOOD
  16. CALCIUM CARBONATE. [Concomitant]
     Active Substance: CALCIUM CARBONATE
     Dosage: 1500MG EVERY MORNING WITH FOOD

REACTIONS (5)
  - Wernicke-Korsakoff syndrome [Unknown]
  - Paranoia [Unknown]
  - Cardiac arrest [Unknown]
  - Left ventricular dysfunction [Unknown]
  - Schizophrenia [Unknown]
